FAERS Safety Report 6760358-5 (Version None)
Quarter: 2010Q2

REPORT INFORMATION
  Report Type: 
  Country: None (occurrence: None)
  Receive Date: 20100528
  Receipt Date: 20081120
  Transmission Date: 20101027
  Serious: No
  Sender: FDA-Public Use
  Company Number: 2008-00138

PATIENT
  Age: 22 Year
  Sex: Female
  Weight: 49.8957 kg

DRUGS (2)
  1. ZICAM COLD REMEDY RAPIDMELTS WITH VITAMIN C [Suspect]
     Dosage: 1 DOSE
     Dates: start: 20081120
  2. ZICAM COLD REMEDY RAPIDMELTS [Suspect]
     Dosage: 2 DOSES
     Dates: start: 20081120

REACTIONS (2)
  - AGEUSIA [None]
  - ANOSMIA [None]
